FAERS Safety Report 20418904 (Version 1)
Quarter: 2022Q1

REPORT INFORMATION
  Report Type: Report from Study
  Country: CN (occurrence: CN)
  Receive Date: 20220202
  Receipt Date: 20220202
  Transmission Date: 20220423
  Serious: Yes (Death, Other)
  Sender: FDA-Public Use
  Company Number: CN-QILU PHARMACEUTICAL (HAINAN) CO., LTD.-QLH-000018-2022

PATIENT
  Age: 70 Year
  Sex: Male

DRUGS (1)
  1. DECITABINE [Suspect]
     Active Substance: DECITABINE
     Indication: Myelodysplastic syndrome unclassifiable
     Dosage: 6 MG / M2 PER DAY FOR 10 DAYS
     Route: 041

REACTIONS (3)
  - Bacteraemia [Fatal]
  - Myelosuppression [Unknown]
  - Pneumonia [Unknown]
